FAERS Safety Report 6283268-9 (Version None)
Quarter: 2009Q3

REPORT INFORMATION
  Report Type: 
  Country: None (occurrence: None)
  Receive Date: 20090724
  Receipt Date: 20090213
  Transmission Date: 20100115
  Serious: No
  Sender: FDA-Public Use
  Company Number: US-AMGEN-KDL331559

PATIENT
  Age: 61 Year
  Sex: Male
  Weight: 145.3 kg

DRUGS (18)
  1. PROCRIT [Suspect]
     Indication: RENAL FAILURE CHRONIC
     Route: 058
     Dates: start: 20081112, end: 20090202
  2. COMBIVENT [Concomitant]
     Dates: start: 20070101
  3. ALBUTEROL [Concomitant]
     Dates: start: 20030101
  4. ASCORBIC ACID [Concomitant]
     Dates: start: 20080301
  5. CARVEDILOL [Concomitant]
     Dates: start: 20080301
  6. TYLENOL W/ CODEINE NO. 3 [Concomitant]
     Dates: start: 20060701
  7. VITAMIN B-12 [Concomitant]
  8. FERROUS SULFATE TAB [Concomitant]
  9. METOLAZONE [Concomitant]
  10. MOMETASONE FUROATE [Concomitant]
     Dates: start: 20080601
  11. SPIRONOLACTONE [Concomitant]
  12. ROSUVASTATIN CALCIUM [Concomitant]
     Dates: start: 20060801
  13. TIOTROPIUM BROMIDE [Concomitant]
     Dates: start: 20090101
  14. FORMOTEROL FUMARATE [Concomitant]
     Dates: start: 20030501
  15. FUROSEMIDE [Concomitant]
     Dates: start: 20030501
  16. LAXATIVES [Concomitant]
  17. LANTUS [Concomitant]
  18. LISINOPRIL [Concomitant]

REACTIONS (2)
  - RASH PRURITIC [None]
  - URTICARIA [None]
